FAERS Safety Report 9342106 (Version 1)
Quarter: 2013Q2

REPORT INFORMATION
  Report Type: Spontaneous
  Country: US (occurrence: US)
  Receive Date: 20130611
  Receipt Date: 20130611
  Transmission Date: 20140414
  Serious: No
  Sender: FDA-Public Use
  Company Number: US-BAYER-2013-071190

PATIENT
  Age: 83 Year
  Sex: Female
  Weight: 74.38 kg

DRUGS (2)
  1. ALEVE GELCAPS [Suspect]
     Indication: ANALGESIC THERAPY
     Dosage: 1 DF, QD WITH FOOD
     Route: 048
     Dates: start: 2008
  2. TRAMADOL [Concomitant]

REACTIONS (2)
  - Tinnitus [Not Recovered/Not Resolved]
  - Incorrect drug administration duration [None]
